FAERS Safety Report 8193116-8 (Version None)
Quarter: 2012Q1

REPORT INFORMATION
  Report Type: 
  Country: None (occurrence: None)
  Receive Date: 20120308
  Receipt Date: 20120308
  Transmission Date: 20120608
  Serious: Yes (Congenital Anomaly)
  Sender: FDA-Public Use
  Company Number: None

PATIENT
  Sex: Female
  Weight: 104.32 kg

DRUGS (1)
  1. TEGRETOL-XR [Suspect]
     Indication: JUVENILE MYOCLONIC EPILEPSY
     Dosage: 200.0 MG
     Route: 048
     Dates: start: 20030101, end: 20120120

REACTIONS (4)
  - MATERNAL EXPOSURE DURING PREGNANCY [None]
  - ABORTION INDUCED [None]
  - BENIGN HYDATIDIFORM MOLE [None]
  - DRUG INTERACTION [None]
